FAERS Safety Report 4816573-0 (Version None)
Quarter: 2005Q4

REPORT INFORMATION
  Report Type: 
  Country: None (occurrence: None)
  Receive Date: 20051031
  Receipt Date: 20051031
  Transmission Date: 20060501
  Serious: Yes (Life-Threatening)
  Sender: FDA-Public Use
  Company Number: None

PATIENT
  Age: 52 Year
  Sex: Male
  Weight: 68.9467 kg

DRUGS (2)
  1. FENTANYL [Suspect]
     Indication: BACK PAIN
     Dosage: ONE PATCH EVERY 3 DAYS
     Dates: start: 20050603, end: 20050618
  2. FENTANYL [Suspect]
     Indication: BACK PAIN
     Dosage: ONE PATCH EVERY 3 DAYS
     Dates: start: 20050618, end: 20050618

REACTIONS (10)
  - ANOREXIA [None]
  - DEPRESSION [None]
  - DRUG WITHDRAWAL SYNDROME [None]
  - DYSPNOEA [None]
  - FEELING JITTERY [None]
  - GASTRIC DISORDER [None]
  - INSOMNIA [None]
  - MENTAL DISORDER [None]
  - SUICIDAL IDEATION [None]
  - WEIGHT DECREASED [None]
